FAERS Safety Report 9174813 (Version 1)
Quarter: 2013Q1

REPORT INFORMATION
  Report Type: Spontaneous
  Country: FR (occurrence: FR)
  Receive Date: 20130320
  Receipt Date: 20130320
  Transmission Date: 20140127
  Serious: Yes (Other)
  Sender: FDA-Public Use
  Company Number: FR-ASTRAZENECA-2013SE17454

PATIENT
  Age: 35 Year
  Sex: Male

DRUGS (3)
  1. XEROQUEL [Suspect]
     Indication: PSYCHOTIC DISORDER
     Route: 048
     Dates: start: 201206
  2. HALDOL [Concomitant]
     Route: 048
  3. LEPTICUR [Concomitant]

REACTIONS (2)
  - Sperm analysis abnormal [Not Recovered/Not Resolved]
  - Infertility [Not Recovered/Not Resolved]
